FAERS Safety Report 18942812 (Version 1)
Quarter: 2021Q1

REPORT INFORMATION
  Report Type: Spontaneous
  Country: CN (occurrence: CN)
  Receive Date: 20210225
  Receipt Date: 20210225
  Transmission Date: 20210420
  Serious: Yes (Other)
  Sender: FDA-Public Use
  Company Number: CN-BAXTER-2021BAX003739

PATIENT
  Age: 55 Year
  Sex: Female
  Weight: 80 kg

DRUGS (4)
  1. ENDOXAN [Suspect]
     Active Substance: CYCLOPHOSPHAMIDE
     Indication: BREAST CANCER FEMALE
     Dosage: 0.9% SODIUM CHLORIDE + CYCLOPHOSPHAMIDE 1000 MG, DAY 1
     Route: 041
     Dates: start: 20210122, end: 20210122
  2. 0.9% SODIUM CHLORIDE INJECTION [Suspect]
     Active Substance: SODIUM CHLORIDE
     Indication: MEDICATION DILUTION
     Dosage: SODIUM CHLORIDE + CYCLOPHOSPHAMIDE OF 1000 MG, DAY 1
     Route: 041
     Dates: start: 20210122, end: 20210122
  3. 5% GLUCOSE  INJECTION [Suspect]
     Active Substance: DEXTROSE
     Indication: MEDICATION DILUTION
     Dosage: 5% GLUCOSE + PIRARUBICIN HYDROCHLORIDE 100 MG
     Route: 041
     Dates: start: 20210122, end: 20210122
  4. PIRARUBICIN HYDROCHLORIDE [Suspect]
     Active Substance: PIRARUBICIN HYDROCHLORIDE
     Indication: BREAST CANCER FEMALE
     Dosage: 5% GLUCOSE + PIRARUBICIN HYDROCHLORIDE 100 MG
     Route: 041
     Dates: start: 20210122, end: 20210122

REACTIONS (1)
  - Myelosuppression [Recovered/Resolved]

NARRATIVE: CASE EVENT DATE: 20210205
